FAERS Safety Report 16806752 (Version 1)
Quarter: 2019Q3

REPORT INFORMATION
  Report Type: Spontaneous
  Country: IT (occurrence: IT)
  Receive Date: 20190913
  Receipt Date: 20190913
  Transmission Date: 20191005
  Serious: Yes (Hospitalization)
  Sender: FDA-Public Use
  Company Number: IT-ANIPHARMA-2019-IT-000067

PATIENT
  Age: 82 Year
  Sex: Female

DRUGS (7)
  1. PRAZENE [Concomitant]
     Active Substance: PRAZEPAM
     Dosage: UNK
     Route: 065
  2. MIRTAZAPINE. [Suspect]
     Active Substance: MIRTAZAPINE
     Dosage: 15 MG QD
     Route: 048
     Dates: start: 20190101, end: 20190715
  3. MEDIPO [Concomitant]
     Active Substance: SIMVASTATIN
     Dosage: UNK
     Route: 065
  4. DAPAROX [Suspect]
     Active Substance: PAROXETINE
     Dosage: 20 MG QD
     Route: 048
     Dates: start: 20190101, end: 20190715
  5. CARDIOASPIRIN [Concomitant]
     Active Substance: ASPIRIN
     Dosage: UNK
     Route: 065
  6. CANDESARTAN CILEXETIL AND HYDROCHLOROTHIAZIDE [Suspect]
     Active Substance: CANDESARTAN CILEXETIL\HYDROCHLOROTHIAZIDE
     Indication: HYPERTENSION
     Dosage: 16/12.5 MILLIGRAM, EVERY DAY
     Route: 048
     Dates: start: 20190101, end: 20190715
  7. LANSOX [Concomitant]
     Active Substance: LANSOPRAZOLE
     Dosage: UNK
     Route: 065

REACTIONS (3)
  - Vertigo [Recovering/Resolving]
  - Paraesthesia [Recovering/Resolving]
  - Hyponatraemia [Recovering/Resolving]

NARRATIVE: CASE EVENT DATE: 20190715
